FAERS Safety Report 11946144 (Version 2)
Quarter: 2016Q1

REPORT INFORMATION
  Report Type: Spontaneous
  Country: US (occurrence: US)
  Receive Date: 20160125
  Receipt Date: 20160129
  Transmission Date: 20160526
  Serious: No
  Sender: FDA-Public Use
  Company Number: US-AMGEN-USASL2015136419

PATIENT
  Age: 62 Year
  Sex: Male

DRUGS (5)
  1. REPATHA [Suspect]
     Active Substance: EVOLOCUMAB
     Indication: PRODUCT USED FOR UNKNOWN INDICATION
     Dosage: UNK
     Route: 065
     Dates: start: 20151111
  2. RASUVO [Concomitant]
     Active Substance: METHOTREXATE SODIUM
  3. FISH OIL [Concomitant]
     Active Substance: FISH OIL
  4. NIACIN. [Concomitant]
     Active Substance: NIACIN
  5. WELCHOL [Concomitant]
     Active Substance: COLESEVELAM HYDROCHLORIDE

REACTIONS (1)
  - Myalgia [Unknown]
